FAERS Safety Report 10330438 (Version 9)
Quarter: 2014Q4

REPORT INFORMATION
  Report Type: Report from Study
  Country: SE (occurrence: SE)
  Receive Date: 20140722
  Receipt Date: 20141117
  Transmission Date: 20150528
  Serious: Yes (Life-Threatening, Hospitalization)
  Sender: FDA-Public Use
  Company Number: SE-ROCHE-1438070

PATIENT
  Age: 67 Year
  Sex: Male
  Weight: 109.6 kg

DRUGS (18)
  1. OBINUTUZUMAB [Suspect]
     Active Substance: OBINUTUZUMAB
     Dosage: C1D8
     Route: 042
     Dates: end: 20140804
  2. KIOVIG [Concomitant]
     Active Substance: HUMAN IMMUNOGLOBULIN G
     Route: 042
     Dates: start: 20130305
  3. TAVEGYL [Concomitant]
     Active Substance: CLEMASTINE FUMARATE
     Dosage: DURING TREATMENT DAYS
     Route: 048
     Dates: start: 20140708, end: 20140804
  4. NOVOMIX 30 [Concomitant]
     Active Substance: INSULIN ASPART
     Route: 058
     Dates: start: 20140224
  5. OMEPRAZOL [Concomitant]
     Active Substance: OMEPRAZOLE
     Route: 048
     Dates: start: 20130527
  6. BENDAMUSTINE [Suspect]
     Active Substance: BENDAMUSTINE
     Dosage: C1D2
     Route: 042
     Dates: start: 20140709, end: 20140804
  7. SPIRIVA [Concomitant]
     Active Substance: TIOTROPIUM BROMIDE MONOHYDRATE
     Route: 045
     Dates: start: 20130601
  8. ACETYLCYSTEINUM [Concomitant]
     Route: 048
     Dates: start: 20130708
  9. WARFARIN [Concomitant]
     Active Substance: WARFARIN
     Route: 048
     Dates: start: 20140502
  10. OBINUTUZUMAB [Suspect]
     Active Substance: OBINUTUZUMAB
     Indication: CHRONIC LYMPHOCYTIC LEUKAEMIA
     Dosage: C1D1
     Route: 042
     Dates: start: 20140708, end: 20140708
  11. DELTISON [Concomitant]
     Dosage: DURING BENDAMUSTINE TREATMENT
     Route: 048
     Dates: start: 20140708, end: 20140804
  12. BENDAMUSTINE [Suspect]
     Active Substance: BENDAMUSTINE
     Indication: CHRONIC LYMPHOCYTIC LEUKAEMIA
     Dosage: C1D1
     Route: 042
     Dates: start: 20140708, end: 20140708
  13. GLYCERYL TRINITRATE [Concomitant]
     Active Substance: NITROGLYCERIN
     Route: 060
     Dates: start: 20110902
  14. NOVOMIX 30 [Concomitant]
     Active Substance: INSULIN ASPART
     Route: 058
     Dates: start: 20140224
  15. OBINUTUZUMAB [Suspect]
     Active Substance: OBINUTUZUMAB
     Dosage: C1D8?THERAPY INTERRUPTED IN RESPONSE TO EVENT.
     Route: 042
     Dates: start: 20140715, end: 20140722
  16. ALLOPURINOL. [Concomitant]
     Active Substance: ALLOPURINOL
     Route: 048
     Dates: start: 20140710, end: 20140725
  17. OBINUTUZUMAB [Suspect]
     Active Substance: OBINUTUZUMAB
     Dosage: C1D2
     Route: 042
     Dates: start: 20140709, end: 20140709
  18. PARACETAMOL [Concomitant]
     Active Substance: ACETAMINOPHEN
     Route: 048
     Dates: start: 20121212

REACTIONS (1)
  - Sepsis [Recovered/Resolved]

NARRATIVE: CASE EVENT DATE: 20140715
